FAERS Safety Report 11062367 (Version 2)
Quarter: 2015Q2

REPORT INFORMATION
  Report Type: Spontaneous
  Country: FR (occurrence: None)
  Receive Date: 20150422
  Receipt Date: 20150511
  Transmission Date: 20150821
  Serious: Yes (Hospitalization)
  Sender: FDA-Public Use
  Company Number: 20151151

PATIENT
  Age: 37 Year
  Sex: Female

DRUGS (1)
  1. METOJECT 10 MG/ML (METHOTREXATE DISODIUM) [Suspect]
     Active Substance: METHOTREXATE SODIUM
     Dates: start: 201406

REACTIONS (4)
  - Drug ineffective [None]
  - Presyncope [None]
  - Fall [None]
  - Malaise [None]

NARRATIVE: CASE EVENT DATE: 201410
